FAERS Safety Report 12427834 (Version 3)
Quarter: 2016Q3

REPORT INFORMATION
  Report Type: Spontaneous
  Country: SK (occurrence: SK)
  Receive Date: 20160602
  Receipt Date: 20160704
  Transmission Date: 20161109
  Serious: Yes (Death, Other)
  Sender: FDA-Public Use
  Company Number: SK-ROCHE-1768123

PATIENT
  Sex: Female
  Weight: 44.1 kg

DRUGS (22)
  1. CARVEDILOL. [Concomitant]
     Active Substance: CARVEDILOL
     Route: 065
  2. VALSARTAN. [Concomitant]
     Active Substance: VALSARTAN
     Route: 065
  3. SYMBICORT [Concomitant]
     Active Substance: BUDESONIDE\FORMOTEROL FUMARATE DIHYDRATE
     Route: 065
  4. METHOTREXATE (METHOTREXATE SODIUM) [Concomitant]
     Active Substance: METHOTREXATE SODIUM
     Route: 065
     Dates: start: 201601, end: 201604
  5. OMEPRAZOL [Concomitant]
     Active Substance: OMEPRAZOLE
     Route: 065
  6. SERTRALINE [Concomitant]
     Active Substance: SERTRALINE HYDROCHLORIDE
     Dosage: 1/2 TABLET
     Route: 065
  7. MYCOPHENOLATE MOFETIL. [Suspect]
     Active Substance: MYCOPHENOLATE MOFETIL
     Dosage: FEBRUARY-MARCH/2016 RESTARTED
     Route: 065
     Dates: end: 201605
  8. VITAMIN C [Concomitant]
     Active Substance: ASCORBIC ACID
     Route: 065
  9. ATARAX [Concomitant]
     Active Substance: HYDROXYZINE\HYDROXYZINE HYDROCHLORIDE
     Route: 065
  10. PIRAMIL [Concomitant]
     Active Substance: RAMIPRIL
     Route: 065
  11. MYCOPHENOLATE MOFETIL. [Suspect]
     Active Substance: MYCOPHENOLATE MOFETIL
     Indication: ANTI-NEUTROPHIL CYTOPLASMIC ANTIBODY POSITIVE VASCULITIS
     Route: 065
     Dates: start: 201511, end: 201512
  12. MYCOPHENOLATE MOFETIL. [Suspect]
     Active Substance: MYCOPHENOLATE MOFETIL
     Route: 065
     Dates: end: 201601
  13. IVIG [Concomitant]
     Active Substance: HUMAN IMMUNOGLOBULIN G
     Dosage: START JAN- APR/2016 2 G/KG 2-4 WEEK ?STOP MAY/2016
     Route: 065
  14. LUSOPRESS [Concomitant]
     Active Substance: NITRENDIPINE
     Route: 065
  15. PREDNISON [Concomitant]
     Active Substance: PREDNISONE
     Route: 042
     Dates: start: 201508, end: 201605
  16. MABTHERA [Suspect]
     Active Substance: RITUXIMAB
     Indication: AUTOIMMUNE PANCYTOPENIA
     Route: 042
     Dates: start: 20160518, end: 20160518
  17. ROCALTROL [Concomitant]
     Active Substance: CALCITRIOL
     Route: 065
  18. NEORECORMON [Concomitant]
     Active Substance: ERYTHROPOIETIN
     Dosage: 3000 IU/0.3 ML 3 WEEKLY
     Route: 065
  19. DICYNONE [Concomitant]
     Active Substance: ETHAMSYLATE
     Route: 042
  20. VIGANTOL [Concomitant]
     Dosage: GTT 1 X 5 GTT
     Route: 065
  21. VITACALCIN [Concomitant]
     Route: 065
  22. METHYLPREDNISOLON [Concomitant]
     Active Substance: METHYLPREDNISOLONE
     Route: 042
     Dates: start: 201508, end: 201605

REACTIONS (7)
  - Off label use [Fatal]
  - White blood cell count decreased [Not Recovered/Not Resolved]
  - Gastrointestinal disorder [Unknown]
  - Pulmonary haemorrhage [Fatal]
  - Neutrophil count decreased [Not Recovered/Not Resolved]
  - Platelet count decreased [Not Recovered/Not Resolved]
  - Bone marrow toxicity [Unknown]
